FAERS Safety Report 4893255-0 (Version None)
Quarter: 2006Q1

REPORT INFORMATION
  Report Type: 
  Country: None (occurrence: None)
  Receive Date: 20060127
  Receipt Date: 20060119
  Transmission Date: 20060701
  Serious: Yes (Death)
  Sender: FDA-Public Use
  Company Number: US-JNJFOC-20040303616

PATIENT
  Sex: Female
  Weight: 60.78 kg

DRUGS (22)
  1. INFLIXIMAB [Suspect]
     Route: 042
     Dates: start: 20010214, end: 20010801
  2. INFLIXIMAB [Suspect]
     Indication: RHEUMATOID ARTHRITIS
     Route: 042
     Dates: start: 20010214, end: 20010801
  3. EVISTA [Concomitant]
  4. PROPRANOLOL [Concomitant]
  5. FOLIC ACID [Concomitant]
  6. MULTI-VITAMIN [Concomitant]
  7. MULTI-VITAMIN [Concomitant]
  8. MULTI-VITAMIN [Concomitant]
  9. MULTI-VITAMIN [Concomitant]
  10. MULTI-VITAMIN [Concomitant]
  11. MULTI-VITAMIN [Concomitant]
  12. MULTI-VITAMIN [Concomitant]
  13. MULTI-VITAMIN [Concomitant]
  14. CALCIUM PLUS D [Concomitant]
  15. ASPIRIN [Concomitant]
  16. NEURONTIN [Concomitant]
  17. NEXIUM [Concomitant]
  18. VICODIN [Concomitant]
  19. VICODIN [Concomitant]
  20. AMITRIPTYLINE HCL [Concomitant]
  21. BENZONATATE [Concomitant]
  22. FAMVIR [Concomitant]

REACTIONS (1)
  - NEOPLASM MALIGNANT [None]
